FAERS Safety Report 14490309 (Version 3)
Quarter: 2018Q4

REPORT INFORMATION
  Report Type: Report from Study
  Country: None (occurrence: US)
  Receive Date: 20180206
  Receipt Date: 20181205
  Transmission Date: 20190204
  Serious: Yes (Other)
  Sender: FDA-Public Use
  Company Number: US-ABBVIE-18K-163-2242997-00

PATIENT
  Sex: Male

DRUGS (1)
  1. HUMIRA [Suspect]
     Active Substance: ADALIMUMAB
     Indication: CROHN^S DISEASE
     Route: 058

REACTIONS (10)
  - Weight decreased [Unknown]
  - Hypersomnia [Unknown]
  - Diarrhoea [Unknown]
  - Asthenia [Unknown]
  - Pallor [Unknown]
  - Glaucoma [Unknown]
  - Macular degeneration [Unknown]
  - Muscular weakness [Unknown]
  - Anaemia [Unknown]
  - Fall [Unknown]
